FAERS Safety Report 15233927 (Version 1)
Quarter: 2018Q3

REPORT INFORMATION
  Report Type: Spontaneous
  Country: US (occurrence: US)
  Receive Date: 20180709
  Receipt Date: 20180709
  Transmission Date: 20181010
  Serious: Yes (Other)
  Sender: FDA-Public Use
  Company Number: None

PATIENT
  Age: 36 Year
  Sex: Male

DRUGS (1)
  1. OMNIPAQUE [Suspect]
     Active Substance: IOHEXOL
     Dates: start: 20180618, end: 20180618

REACTIONS (4)
  - Urticaria [None]
  - Dyspnoea [None]
  - Pruritus generalised [None]
  - Speech disorder [None]

NARRATIVE: CASE EVENT DATE: 20180618
